FAERS Safety Report 25515818 (Version 1)
Quarter: 2025Q3

REPORT INFORMATION
  Report Type: Spontaneous
  Country: US (occurrence: US)
  Receive Date: 20250704
  Receipt Date: 20250704
  Transmission Date: 20251020
  Serious: No
  Sender: RADIUS PHARM
  Company Number: US-RADIUS HEALTH INC.-2025US000953

PATIENT
  Sex: Female

DRUGS (1)
  1. TYMLOS [Suspect]
     Active Substance: ABALOPARATIDE
     Indication: Senile osteoporosis
     Dosage: 80 MICROGRAM, QD
     Route: 058

REACTIONS (20)
  - Gastrooesophageal reflux disease [Unknown]
  - Restless legs syndrome [Unknown]
  - Arthralgia [Unknown]
  - Joint instability [Unknown]
  - Injection site erythema [Unknown]
  - Injection site pain [Unknown]
  - Muscle spasms [Unknown]
  - Palpitations [Unknown]
  - Nausea [Unknown]
  - Asthenia [Unknown]
  - Tremor [Unknown]
  - Headache [Unknown]
  - Hot flush [Unknown]
  - Back pain [Unknown]
  - Meniere^s disease [Unknown]
  - Injection site bruising [Unknown]
  - Muscular weakness [Unknown]
  - Pain [Unknown]
  - Fatigue [Unknown]
  - Dizziness [Recovered/Resolved]
